FAERS Safety Report 7584947-3 (Version None)
Quarter: 2011Q2

REPORT INFORMATION
  Report Type: 
  Country: None (occurrence: None)
  Receive Date: 20110630
  Receipt Date: 20110615
  Transmission Date: 20111010
  Serious: Yes (Other)
  Sender: FDA-Public Use
  Company Number: US-BAYER-2011-052493

PATIENT
  Sex: Female
  Weight: 109 kg

DRUGS (6)
  1. ALKA-SELTZER ORIGINAL [Suspect]
     Dosage: TOOK BETWEEN 2-14 TABLETS PER DAY / COUNT SIZE 72S
     Route: 048
  2. ASPIRIN [Suspect]
     Dosage: UNK
     Dates: start: 20110101
  3. OMEPRAZOLE [Concomitant]
  4. OXYBUTYNIN [Concomitant]
  5. ALKA-SELTZER ORIGINAL [Suspect]
     Indication: GASTROOESOPHAGEAL REFLUX DISEASE
     Dosage: COUNT SIZE 72S
     Route: 048
  6. MULTI-VITAMIN [Concomitant]

REACTIONS (1)
  - GASTRIC ULCER [None]
